FAERS Safety Report 15551993 (Version 2)
Quarter: 2018Q4

REPORT INFORMATION
  Report Type: Spontaneous
  Country: CA (occurrence: CA)
  Receive Date: 20181025
  Receipt Date: 20181227
  Transmission Date: 20190205
  Serious: Yes (Death, Other)
  Sender: FDA-Public Use
  Company Number: CA-GILEAD-2018-0370531

PATIENT
  Age: 62 Year
  Sex: Male
  Weight: 148.75 kg

DRUGS (8)
  1. ACT GLICLAZIDE MR [Concomitant]
  2. JANUMET [Concomitant]
     Active Substance: METFORMIN HYDROCHLORIDE\SITAGLIPTIN PHOSPHATE
  3. VITAMIN B12 [Concomitant]
     Active Substance: CYANOCOBALAMIN
  4. EPCLUSA [Suspect]
     Active Substance: SOFOSBUVIR\VELPATASVIR
     Indication: CHRONIC HEPATITIS C
     Dosage: 1 DF, QD
     Route: 048
     Dates: start: 2017, end: 2018
  5. RAMIPRIL. [Concomitant]
     Active Substance: RAMIPRIL
  6. CLONAZEPAM. [Concomitant]
     Active Substance: CLONAZEPAM
  7. INVEGA [Concomitant]
     Active Substance: PALIPERIDONE
  8. ROSUVASTATIN. [Concomitant]
     Active Substance: ROSUVASTATIN

REACTIONS (3)
  - Fall [Fatal]
  - Myocardial infarction [Fatal]
  - Abdominal pain upper [Unknown]

NARRATIVE: CASE EVENT DATE: 2018
